FAERS Safety Report 12591254 (Version 1)
Quarter: 2016Q3

REPORT INFORMATION
  Report Type: Spontaneous
  Country: US (occurrence: None)
  Receive Date: 20160725
  Receipt Date: 20160725
  Transmission Date: 20161109
  Serious: Yes (Other)
  Sender: FDA-Public Use
  Company Number: None

PATIENT
  Age: 70 Year
  Sex: Male
  Weight: 75.75 kg

DRUGS (4)
  1. PENTASA [Concomitant]
     Active Substance: MESALAMINE
  2. PROBIOTIC VSL #3 [Concomitant]
  3. AZATHIOPRINE. [Suspect]
     Active Substance: AZATHIOPRINE
     Indication: CROHN^S DISEASE
     Route: 048
     Dates: start: 20160610, end: 20160615
  4. AMLODIPINE BESYLATE. [Concomitant]
     Active Substance: AMLODIPINE BESYLATE

REACTIONS (7)
  - Tendon pain [None]
  - Burning sensation [None]
  - Influenza like illness [None]
  - Peripheral swelling [None]
  - Pruritus [None]
  - Rash [None]
  - Pyrexia [None]

NARRATIVE: CASE EVENT DATE: 20160610
